FAERS Safety Report 8996736 (Version 1)
Quarter: 2012Q4

REPORT INFORMATION
  Report Type: Spontaneous
  Country: US (occurrence: None)
  Receive Date: 20121228
  Receipt Date: 20121228
  Transmission Date: 20130627
  Serious: Yes (Death)
  Sender: FDA-Public Use
  Company Number: None

PATIENT
  Sex: Male
  Weight: 86.18 kg

DRUGS (1)
  1. INCIVEK [Suspect]
     Indication: HEPATITIS C
     Dosage: 750 mg = 2 tabs 375 mg tid 3xday po/oral
     Route: 048
     Dates: start: 20120319, end: 20120504

REACTIONS (11)
  - Rash pruritic [None]
  - Stomatitis [None]
  - Body temperature increased [None]
  - Fatigue [None]
  - Asthenia [None]
  - Nausea [None]
  - Dysgeusia [None]
  - Ulcer [None]
  - Peritonitis [None]
  - Sepsis [None]
  - Organ failure [None]
